FAERS Safety Report 21155040 (Version 1)
Quarter: 2022Q3

REPORT INFORMATION
  Report Type: Spontaneous
  Country: US (occurrence: None)
  Receive Date: 20220731
  Receipt Date: 20220731
  Transmission Date: 20221027
  Serious: Yes (Other)
  Sender: FDA-Public Use
  Company Number: None

PATIENT
  Age: 64 Year
  Sex: Female
  Weight: 77.4 kg

DRUGS (10)
  1. PAXLOVID [Suspect]
     Active Substance: NIRMATRELVIR\RITONAVIR
     Indication: COVID-19
     Dosage: OTHER QUANTITY : 3 TABLET(S);?FREQUENCY : TWICE A DAY;?
     Route: 048
     Dates: start: 20220527, end: 20220529
  2. LISINOPRIL [Concomitant]
     Active Substance: LISINOPRIL
  3. ZESTORETIC [Concomitant]
     Active Substance: HYDROCHLOROTHIAZIDE\LISINOPRIL
  4. AMLODIPINE [Concomitant]
     Active Substance: AMLODIPINE BESYLATE
  5. GABAPENTIN [Concomitant]
     Active Substance: GABAPENTIN
  6. ZOLOFT [Concomitant]
     Active Substance: SERTRALINE HYDROCHLORIDE
  7. ASPIRIN [Concomitant]
     Active Substance: ASPIRIN
  8. TYLENOL [Concomitant]
     Active Substance: ACETAMINOPHEN
  9. ADVIL [Concomitant]
     Active Substance: IBUPROFEN
  10. VITAMIN D3 [Concomitant]
     Active Substance: CHOLECALCIFEROL

REACTIONS (6)
  - Dysgeusia [None]
  - Illness [None]
  - Pruritus [None]
  - Vomiting [None]
  - Fall [None]
  - Anal incontinence [None]

NARRATIVE: CASE EVENT DATE: 20220529
